FAERS Safety Report 20439455 (Version 1)
Quarter: 2022Q1

REPORT INFORMATION
  Report Type: Spontaneous
  Country: US (occurrence: None)
  Receive Date: 20220205
  Receipt Date: 20220205
  Transmission Date: 20220423
  Serious: No
  Sender: FDA-Public Use
  Company Number: None

PATIENT
  Sex: Female

DRUGS (1)
  1. HUMIRA [Suspect]
     Active Substance: ADALIMUMAB
     Indication: Crohn^s disease
     Dosage: 40MG/0.4ML EVERY 2 WEEKS UNDER THE SKIN?
     Route: 058
     Dates: start: 201508

REACTIONS (2)
  - Abdominal pain upper [None]
  - Crohn^s disease [None]
